FAERS Safety Report 7069605-6 (Version None)
Quarter: 2010Q4

REPORT INFORMATION
  Report Type: 
  Country: None (occurrence: None)
  Receive Date: 20101028
  Receipt Date: 20100413
  Transmission Date: 20110411
  Serious: Yes (Other)
  Sender: FDA-Public Use
  Company Number: US-WYE-H14540210

PATIENT
  Age: 82 Year
  Sex: Female

DRUGS (1)
  1. AMIODARONE HCL [Suspect]
     Dates: start: 20050901

REACTIONS (3)
  - HEPATIC CIRRHOSIS [None]
  - LEUKOCYTOSIS [None]
  - PNEUMONIA [None]
